FAERS Safety Report 12052508 (Version 2)
Quarter: 2016Q2

REPORT INFORMATION
  Report Type: Spontaneous
  Country: US (occurrence: US)
  Receive Date: 20160209
  Receipt Date: 20160611
  Transmission Date: 20160815
  Serious: Yes (Other)
  Sender: FDA-Public Use
  Company Number: US-TEVA-631846USA

PATIENT
  Age: 40 Year
  Sex: Female

DRUGS (1)
  1. ZECUITY [Suspect]
     Active Substance: SUMATRIPTAN SUCCINATE
     Dosage: HAS USED 5 OR 6 PATCHES
     Route: 062
     Dates: start: 201601, end: 201601

REACTIONS (11)
  - Chest pain [Unknown]
  - Product physical issue [Unknown]
  - Drug ineffective [Unknown]
  - Palpitations [Unknown]
  - Application site erythema [Recovered/Resolved]
  - Dizziness [Unknown]
  - Chest discomfort [Unknown]
  - Headache [Unknown]
  - Application site pain [Recovered/Resolved]
  - Product adhesion issue [Unknown]
  - Sunburn [Recovered/Resolved]

NARRATIVE: CASE EVENT DATE: 201601
